FAERS Safety Report 17741954 (Version 4)
Quarter: 2021Q1

REPORT INFORMATION
  Report Type: Report from Study
  Country: ES (occurrence: ES)
  Receive Date: 20200504
  Receipt Date: 20210208
  Transmission Date: 20210419
  Serious: Yes (Life-Threatening, Hospitalization)
  Sender: FDA-Public Use
  Company Number: ES-SAKK-2020SA047914AA

PATIENT
  Age: 84 Year
  Sex: Male
  Weight: 46.8 kg

DRUGS (19)
  1. DEXAMETHASONE. [Suspect]
     Active Substance: DEXAMETHASONE
     Indication: PLASMA CELL MYELOMA
     Dosage: 20 MG, QOW
     Route: 065
     Dates: start: 20200219, end: 20200219
  2. DEXAMETHASONE. [Suspect]
     Active Substance: DEXAMETHASONE
     Dosage: 20 MG, QW
     Route: 065
     Dates: start: 20190805, end: 20190805
  3. ACETYLSALICYLIC ACID [Concomitant]
     Active Substance: ASPIRIN
     Indication: PROPHYLAXIS
     Dosage: UNK MG, QD
     Route: 048
     Dates: start: 20190805, end: 20200225
  4. FUROSEMIDE. [Concomitant]
     Active Substance: FUROSEMIDE
     Dosage: UNK
     Route: 048
     Dates: start: 20191007
  5. BORTEZOMIB. [Suspect]
     Active Substance: BORTEZOMIB
     Indication: PLASMA CELL MYELOMA
     Dosage: 1.3 MG/M2 OTHER
     Route: 058
     Dates: start: 20200107, end: 20200107
  6. BIMATOPROST. [Concomitant]
     Active Substance: BIMATOPROST
     Dosage: DOSAGE (TOTAL DAILY DOSE): 1 APPLICATION
     Route: 047
     Dates: start: 2017
  7. LENALIDOMIDE [Suspect]
     Active Substance: LENALIDOMIDE
     Indication: PLASMA CELL MYELOMA
     Dosage: 15 MG/M2, QD
     Route: 048
     Dates: start: 20200219, end: 20200219
  8. FORTASEC [LOPERAMIDE] [Concomitant]
     Active Substance: LOPERAMIDE
     Dosage: UNK
     Route: 048
     Dates: start: 20191216, end: 20201225
  9. OMEPRAZOLE. [Concomitant]
     Active Substance: OMEPRAZOLE
     Indication: PROPHYLAXIS
     Dosage: UNK
     Route: 048
     Dates: start: 20190805
  10. CACICOL [Concomitant]
     Dosage: TOTAL DOSE 2 UNKNOWN UNIT
     Route: 047
     Dates: start: 20191024, end: 20200207
  11. FORTASEC [LOPERAMIDE] [Concomitant]
     Active Substance: LOPERAMIDE
     Dosage: TABLET 3
     Route: 048
     Dates: start: 20191229, end: 20200220
  12. ESCITALOPRAM [Concomitant]
     Active Substance: ESCITALOPRAM OXALATE
     Dosage: UNK
     Route: 048
     Dates: start: 20200120, end: 20200320
  13. ISATUXIMAB [Suspect]
     Active Substance: ISATUXIMAB
     Indication: PLASMA CELL MYELOMA
     Dosage: 10 MG/KG, QOW
     Route: 042
     Dates: start: 20200219, end: 20200219
  14. ISATUXIMAB [Suspect]
     Active Substance: ISATUXIMAB
     Dosage: 10 MG/KG, QW
     Route: 042
     Dates: start: 20190805, end: 20190805
  15. LENALIDOMIDE [Suspect]
     Active Substance: LENALIDOMIDE
     Dosage: 25 MG, QD
     Route: 048
     Dates: start: 20190805
  16. BORTEZOMIB. [Suspect]
     Active Substance: BORTEZOMIB
     Dosage: 1.3 MG/M2 OTHER
     Route: 058
     Dates: start: 20190805, end: 20190805
  17. ACICLOVIR [Concomitant]
     Active Substance: ACYCLOVIR
     Indication: PROPHYLAXIS
     Dosage: UNK MG, QD
     Route: 048
     Dates: start: 20190805
  18. VIGAMOX [Concomitant]
     Active Substance: MOXIFLOXACIN HYDROCHLORIDE
     Dosage: DOSAGE (TOTAL DAILY DOSE): 1
     Route: 047
     Dates: start: 20191024
  19. DIOSMECTITE [Concomitant]
     Active Substance: MONTMORILLONITE
     Dosage: DOSAGE (TOTAL DAILY DOSE): 3/ DAY
     Route: 048
     Dates: start: 20191226, end: 20200220

REACTIONS (1)
  - Pulmonary embolism [Recovered/Resolved with Sequelae]

NARRATIVE: CASE EVENT DATE: 20200220
